FAERS Safety Report 4733840-X (Version None)
Quarter: 2005Q3

REPORT INFORMATION
  Report Type: 
  Country: None (occurrence: None)
  Receive Date: 20050803
  Receipt Date: 20050309
  Transmission Date: 20060218
  Serious: Yes (Hospitalization)
  Sender: FDA-Public Use
  Company Number: US-MERCK-0503USA02056

PATIENT
  Age: 51 Year
  Sex: Male
  Weight: 102 kg

DRUGS (10)
  1. VIOXX [Suspect]
     Indication: ARTHRITIS
     Route: 048
     Dates: start: 20010101, end: 20020401
  2. CYCLOBENZAPRINE HYDROCHLORIDE [Concomitant]
     Indication: MUSCLE SPASMS
     Route: 065
  3. LORTAB [Concomitant]
     Indication: BACK PAIN
     Route: 065
  4. ZANAFLEX [Concomitant]
     Route: 065
  5. ACETAMINOPHEN AND HYDROCODONE BITARTRATE [Concomitant]
     Route: 065
  6. TRIMOX [Concomitant]
     Route: 065
  7. PSEUDOVENT [Concomitant]
     Route: 065
  8. LEVAQUIN [Concomitant]
     Route: 065
  9. RHINOCORT [Concomitant]
     Route: 065
  10. [THERAPY UNSPECIFIED] [Concomitant]
     Route: 065

REACTIONS (5)
  - ANXIETY [None]
  - BLOOD CHOLESTEROL INCREASED [None]
  - DYSPEPSIA [None]
  - HYPERTENSION [None]
  - MYOCARDIAL INFARCTION [None]
